FAERS Safety Report 7717533-2 (Version None)
Quarter: 2011Q3

REPORT INFORMATION
  Report Type: 
  Country: None (occurrence: None)
  Receive Date: 20110830
  Receipt Date: 20110817
  Transmission Date: 20111222
  Serious: Yes (Hospitalization, Other)
  Sender: FDA-Public Use
  Company Number: DE-ELI_LILLY_AND_COMPANY-DE201108005173

PATIENT
  Sex: Male

DRUGS (4)
  1. FORTEO [Suspect]
     Indication: OSTEOPOROSIS
     Dosage: UNK
     Route: 058
     Dates: start: 20110512
  2. PREDNISOLONE [Concomitant]
     Dosage: UNK, UNKNOWN
     Route: 065
  3. MORPHINE [Concomitant]
     Dosage: UNK, UNKNOWN
     Route: 065
  4. THEOPHYLLINE [Concomitant]
     Indication: DYSPNOEA
     Dosage: UNK, UNKNOWN
     Route: 065

REACTIONS (6)
  - CONSTIPATION [None]
  - DECREASED APPETITE [None]
  - DYSPNOEA [None]
  - WEIGHT INCREASED [None]
  - CHEST PAIN [None]
  - HYPERHIDROSIS [None]
